FAERS Safety Report 5564971-2 (Version None)
Quarter: 2007Q4

REPORT INFORMATION
  Report Type: 
  Country: None (occurrence: None)
  Receive Date: 20071218
  Receipt Date: 20071217
  Transmission Date: 20080405
  Serious: Yes (Other)
  Sender: FDA-Public Use
  Company Number: B0499978A

PATIENT
  Age: 61 Year
  Sex: Female

DRUGS (2)
  1. PAXIL [Suspect]
     Dosage: 20MG PER DAY
     Route: 048
  2. SULPIRIDE [Concomitant]
     Dosage: 150MG PER DAY

REACTIONS (1)
  - DEPRESSED LEVEL OF CONSCIOUSNESS [None]
